FAERS Safety Report 14714515 (Version 1)
Quarter: 2018Q2

REPORT INFORMATION
  Report Type: Spontaneous
  Country: GB (occurrence: GB)
  Receive Date: 20180404
  Receipt Date: 20180404
  Transmission Date: 20180711
  Serious: Yes (Other)
  Sender: FDA-Public Use
  Company Number: GB-PFIZER INC-2018136824

PATIENT
  Age: 36 Year
  Sex: Female
  Weight: 96 kg

DRUGS (5)
  1. FEXOFENADINE [Concomitant]
     Active Substance: FEXOFENADINE\FEXOFENADINE HYDROCHLORIDE
     Dosage: 1 DF, 1X/DAY
     Dates: start: 20170912
  2. COCODAMOL [Concomitant]
     Active Substance: ACETAMINOPHEN\CODEINE PHOSPHATE
     Dosage: 8 DF, 1X/DAY
     Dates: start: 20180219
  3. IBUPROFEN. [Suspect]
     Active Substance: IBUPROFEN
     Dosage: UNK
     Dates: start: 20180219
  4. RANITIDINE. [Concomitant]
     Active Substance: RANITIDINE
     Dosage: 1 DF, 1X/DAY
     Dates: start: 20180219
  5. BACLOFEN. [Concomitant]
     Active Substance: BACLOFEN
     Dosage: 3 DF, 1X/DAY
     Dates: start: 20180219

REACTIONS (1)
  - Lip swelling [Recovered/Resolved]

NARRATIVE: CASE EVENT DATE: 20180221
